FAERS Safety Report 19285404 (Version 1)
Quarter: 2021Q2

REPORT INFORMATION
  Report Type: Spontaneous
  Country: US (occurrence: US)
  Receive Date: 20210521
  Receipt Date: 20210521
  Transmission Date: 20210717
  Serious: No
  Sender: FDA-Public Use
  Company Number: US-RADIUS HEALTH INC.-2020US001691

PATIENT
  Age: 64 Year
  Sex: Female

DRUGS (2)
  1. TYMLOS [Suspect]
     Active Substance: ABALOPARATIDE
     Dosage: 80MCG/QD
     Route: 058
     Dates: start: 201906
  2. TYMLOS [Suspect]
     Active Substance: ABALOPARATIDE
     Indication: OSTEOPOROSIS POSTMENOPAUSAL
     Dosage: 80MCG/QD
     Route: 058
     Dates: start: 201905

REACTIONS (4)
  - Product quality issue [Unknown]
  - Contusion [Recovering/Resolving]
  - Accidental overdose [Unknown]
  - Incorrect dose administered by product [Recovered/Resolved]

NARRATIVE: CASE EVENT DATE: 202005
